FAERS Safety Report 7393606-1 (Version None)
Quarter: 2011Q2

REPORT INFORMATION
  Report Type: 
  Country: None (occurrence: None)
  Receive Date: 20110405
  Receipt Date: 20110331
  Transmission Date: 20111010
  Serious: Yes (Other)
  Sender: FDA-Public Use
  Company Number: US-PFIZER INC-2011072444

PATIENT
  Age: 51 Year
  Sex: Male
  Weight: 70.295 kg

DRUGS (1)
  1. ADVIL LIQUI-GELS [Suspect]
     Indication: MUSCULOSKELETAL PAIN
     Dosage: 3200 MG, 1X/DAY
     Route: 048
     Dates: start: 20110330

REACTIONS (2)
  - BLOOD URINE PRESENT [None]
  - DRUG ADMINISTRATION ERROR [None]
